FAERS Safety Report 4368912-5 (Version None)
Quarter: 2004Q2

REPORT INFORMATION
  Report Type: 
  Country: None (occurrence: None)
  Receive Date: 20040525
  Receipt Date: 20040512
  Transmission Date: 20050107
  Serious: Yes (Hospitalization)
  Sender: FDA-Public Use
  Company Number: 2004032070

PATIENT
  Sex: Female

DRUGS (5)
  1. GEODON [Suspect]
     Indication: INSOMNIA
     Dosage: 120 MG (60 MG, BID INTERVAL: EVERY DAY)
  2. GEODON [Suspect]
     Indication: SCHIZOPHRENIA, PARANOID TYPE
     Dosage: 120 MG (60 MG, BID INTERVAL: EVERY DAY)
  3. DIPHENHYDRAMINE HCL [Suspect]
     Indication: INSOMNIA
     Dosage: (50 MG)
     Dates: start: 20040101
  4. OLANZAPINE [Suspect]
     Indication: INSOMNIA
     Dosage: (20 MG)
     Dates: start: 20040101
  5. ZOLPIDEM TARTRATE [Suspect]
     Indication: INSOMNIA
     Dosage: (20 MG)
     Dates: start: 20040101

REACTIONS (3)
  - CONDITION AGGRAVATED [None]
  - INSOMNIA [None]
  - SOCIAL AVOIDANT BEHAVIOUR [None]
